FAERS Safety Report 18586891 (Version 1)
Quarter: 2020Q4

REPORT INFORMATION
  Report Type: Spontaneous
  Country: GB (occurrence: GB)
  Receive Date: 20201207
  Receipt Date: 20201207
  Transmission Date: 20210114
  Serious: Yes (Other)
  Sender: FDA-Public Use
  Company Number: GB-PFIZER INC-2020475734

PATIENT
  Age: 31 Year
  Sex: Male
  Weight: 88 kg

DRUGS (1)
  1. SERTRALINE HCL [Suspect]
     Active Substance: SERTRALINE HYDROCHLORIDE
     Indication: ANXIETY DISORDER
     Dosage: 50 MG
     Route: 048
     Dates: start: 20200624

REACTIONS (5)
  - Alcohol interaction [Unknown]
  - Abnormal behaviour [Unknown]
  - Amnesia [Recovered/Resolved]
  - Aggression [Unknown]
  - Product label confusion [Unknown]

NARRATIVE: CASE EVENT DATE: 2020
